FAERS Safety Report 14624528 (Version 1)
Quarter: 2018Q1

REPORT INFORMATION
  Report Type: Spontaneous
  Country: US (occurrence: US)
  Receive Date: 20180311
  Receipt Date: 20180311
  Transmission Date: 20180509
  Serious: Yes (Disabling, Other)
  Sender: FDA-Public Use
  Company Number: None

PATIENT
  Age: 62 Year
  Sex: Female
  Weight: 108 kg

DRUGS (9)
  1. VITAMIN B12 [Concomitant]
     Active Substance: CYANOCOBALAMIN
  2. GAS-X [Concomitant]
     Active Substance: DIMETHICONE
  3. METROPOPL [Concomitant]
  4. SYNTHROID [Concomitant]
     Active Substance: LEVOTHYROXINE SODIUM
  5. D3 CHOLOROPHYLL [Concomitant]
  6. GARLIC. [Concomitant]
     Active Substance: GARLIC
  7. LOSARTAN. [Suspect]
     Active Substance: LOSARTAN
     Indication: HYPERTENSION
     Dosage: ?          QUANTITY:1 TABLET(S);?
     Route: 048
     Dates: start: 20090303, end: 20180219
  8. FOLIC ACID. [Concomitant]
     Active Substance: FOLIC ACID
  9. COQ10 [Concomitant]
     Active Substance: UBIDECARENONE

REACTIONS (6)
  - Chromaturia [None]
  - Swelling [None]
  - Chest pain [None]
  - Peripheral coldness [None]
  - Urticaria [None]
  - Pruritus [None]

NARRATIVE: CASE EVENT DATE: 20180219
